FAERS Safety Report 11912987 (Version 1)
Quarter: 2016Q1

REPORT INFORMATION
  Report Type: Spontaneous
  Country: FR (occurrence: FR)
  Receive Date: 20160113
  Receipt Date: 20160113
  Transmission Date: 20160526
  Serious: Yes (Hospitalization, Other)
  Sender: FDA-Public Use
  Company Number: FR-BRISTOL-MYERS SQUIBB COMPANY-10918340

PATIENT
  Age: 0 Day
  Sex: Female
  Weight: 2 kg

DRUGS (10)
  1. INVIRASE [Suspect]
     Active Substance: SAQUINAVIR MESYLATE
     Indication: PRODUCT USED FOR UNKNOWN INDICATION
     Dosage: UNK
     Route: 064
     Dates: end: 20010526
  2. VANCOMYCIN [Concomitant]
     Active Substance: VANCOMYCIN
     Indication: PRODUCT USED FOR UNKNOWN INDICATION
     Route: 065
  3. CLAFORAN [Concomitant]
     Active Substance: CEFOTAXIME SODIUM
     Indication: PRODUCT USED FOR UNKNOWN INDICATION
     Route: 065
  4. RETROVIR [Suspect]
     Active Substance: ZIDOVUDINE
     Indication: HIV INFECTION
     Dosage: 2 MG/KG, INTERMITTENT
     Route: 048
     Dates: start: 20010526, end: 20010528
  5. RETROVIR [Suspect]
     Active Substance: ZIDOVUDINE
     Indication: ANTIRETROVIRAL THERAPY
     Dosage: 1.5 MG/KG, INTERMITTENT
     Route: 042
     Dates: start: 20010528, end: 20010530
  6. ZERIT [Suspect]
     Active Substance: STAVUDINE
     Indication: PRODUCT USED FOR UNKNOWN INDICATION
     Dosage: UNK
     Route: 064
     Dates: end: 20010526
  7. VIRAMUNE [Suspect]
     Active Substance: NEVIRAPINE
     Indication: PRODUCT USED FOR UNKNOWN INDICATION
     Dosage: UNK
     Route: 064
     Dates: end: 20010526
  8. NEVIRAPINE. [Suspect]
     Active Substance: NEVIRAPINE
     Indication: ANTIRETROVIRAL THERAPY
     Dosage: 2 MG/KG, UNK
     Route: 048
     Dates: start: 20010601, end: 20010601
  9. AMIKLIN [Concomitant]
     Active Substance: AMIKACIN SULFATE
     Indication: PRODUCT USED FOR UNKNOWN INDICATION
     Route: 065
  10. NORVIR [Suspect]
     Active Substance: RITONAVIR
     Indication: PRODUCT USED FOR UNKNOWN INDICATION
     Dosage: UNK
     Route: 064
     Dates: end: 20010526

REACTIONS (11)
  - Agitation [Not Recovered/Not Resolved]
  - Foetal exposure during pregnancy [Unknown]
  - Tremor [Not Recovered/Not Resolved]
  - Low birth weight baby [Unknown]
  - Skin discolouration [Not Recovered/Not Resolved]
  - Blood lactic acid increased [Recovered/Resolved]
  - Nausea [Not Recovered/Not Resolved]
  - Growth retardation [Not Recovered/Not Resolved]
  - Drug detoxification [Not Recovered/Not Resolved]
  - Vomiting [Unknown]
  - White blood cell count decreased [Not Recovered/Not Resolved]

NARRATIVE: CASE EVENT DATE: 20010526
